FAERS Safety Report 6631378-6 (Version None)
Quarter: 2010Q1

REPORT INFORMATION
  Report Type: 
  Country: None (occurrence: None)
  Receive Date: 20100312
  Receipt Date: 20100302
  Transmission Date: 20100710
  Serious: Yes (Hospitalization)
  Sender: FDA-Public Use
  Company Number: IE-MEDIMMUNE-MEDI-0010701

PATIENT
  Sex: Male

DRUGS (1)
  1. SYNAGIS [Suspect]
     Route: 030
     Dates: start: 20100201, end: 20100201

REACTIONS (1)
  - VIRAL INFECTION [None]
